FAERS Safety Report 5409933-0 (Version None)
Quarter: 2007Q3

REPORT INFORMATION
  Report Type: 
  Country: None (occurrence: None)
  Receive Date: 20070807
  Receipt Date: 20070730
  Transmission Date: 20080115
  Serious: Yes (Hospitalization)
  Sender: FDA-Public Use
  Company Number: S07-NOR-03128-01

PATIENT
  Age: 63 Year
  Sex: Male

DRUGS (7)
  1. CAMPRAL [Suspect]
     Indication: ALCOHOLISM
     Dosage: 666 MG TID PO
     Route: 048
     Dates: start: 20070612, end: 20070624
  2. SIMVASTATIN [Concomitant]
  3. METOPROLOL SUCCINATE [Concomitant]
  4. NEXIUM [Concomitant]
  5. SPIRIX      (SPIRONOLACTONE) [Concomitant]
  6. BUMETANIDE [Concomitant]
  7. WARFARIN SODIUM [Concomitant]

REACTIONS (17)
  - ATRIAL FLUTTER [None]
  - BLOOD GLUCOSE INCREASED [None]
  - BODY TEMPERATURE INCREASED [None]
  - C-REACTIVE PROTEIN INCREASED [None]
  - CHOLELITHIASIS [None]
  - DRUG INTERACTION [None]
  - HAEMATOCRIT DECREASED [None]
  - HAEMOGLOBIN DECREASED [None]
  - HEART RATE DECREASED [None]
  - HEPATITIS [None]
  - INTERNATIONAL NORMALISED RATIO INCREASED [None]
  - JAUNDICE [None]
  - NEUTROPHIL COUNT INCREASED [None]
  - PLATELET COUNT DECREASED [None]
  - PROTEIN URINE PRESENT [None]
  - URINE BILIRUBIN INCREASED [None]
  - UROBILIN URINE PRESENT [None]
